FAERS Safety Report 19907467 (Version 1)
Quarter: 2021Q3

REPORT INFORMATION
  Report Type: Spontaneous
  Country: US (occurrence: US)
  Receive Date: 20210930
  Receipt Date: 20210930
  Transmission Date: 20211014
  Serious: No
  Sender: FDA-Public Use
  Company Number: US-ELI_LILLY_AND_COMPANY-US202109012549

PATIENT
  Sex: Female

DRUGS (1)
  1. BASAGLAR [Suspect]
     Active Substance: INSULIN GLARGINE
     Indication: PRODUCT USED FOR UNKNOWN INDICATION
     Dosage: 22 U, UNKNOWN
     Route: 065
     Dates: start: 202101

REACTIONS (8)
  - Palpitations [Unknown]
  - Feeling abnormal [Unknown]
  - Dyspepsia [Unknown]
  - Nervousness [Unknown]
  - Throat tightness [Unknown]
  - Dizziness [Unknown]
  - Blood glucose decreased [Unknown]
  - Anxiety [Unknown]
